FAERS Safety Report 10420788 (Version 1)
Quarter: 2014Q3

REPORT INFORMATION
  Report Type: Spontaneous
  Country: US (occurrence: None)
  Receive Date: 20140829
  Receipt Date: 20140829
  Transmission Date: 20150326
  Serious: Yes (Other)
  Sender: FDA-Public Use
  Company Number: None

PATIENT
  Age: 61 Year
  Sex: Female
  Weight: 63 kg

DRUGS (1)
  1. LEVULAN [Suspect]
     Active Substance: AMINOLEVULINIC ACID HYDROCHLORIDE
     Indication: ACTINIC KERATOSIS
     Route: 061
     Dates: start: 20140825

REACTIONS (5)
  - Swelling face [None]
  - Pain [None]
  - Erythema [None]
  - Skin tightness [None]
  - Eye movement disorder [None]

NARRATIVE: CASE EVENT DATE: 20140828
